FAERS Safety Report 12628669 (Version 8)
Quarter: 2019Q1

REPORT INFORMATION
  Report Type: Spontaneous
  Country: US (occurrence: US)
  Receive Date: 20160808
  Receipt Date: 20190312
  Transmission Date: 20190417
  Serious: Yes (Other)
  Sender: FDA-Public Use
  Company Number: US-JAZZ-2016-US-004451

PATIENT
  Sex: Male

DRUGS (18)
  1. FENOFIBRATE. [Concomitant]
     Active Substance: FENOFIBRATE
  2. NUVIGIL [Concomitant]
     Active Substance: ARMODAFINIL
  3. XYREM [Suspect]
     Active Substance: SODIUM OXYBATE
     Indication: NARCOLEPSY
     Dosage: 2.25 G, BID
     Route: 048
     Dates: start: 201510, end: 201510
  4. XYREM [Suspect]
     Active Substance: SODIUM OXYBATE
     Dosage: 3.75 G, BID
     Route: 048
     Dates: start: 201511
  5. COENZYME Q10 [Concomitant]
     Active Substance: UBIDECARENONE
  6. MUCINEX ALLERGY [Concomitant]
     Active Substance: FEXOFENADINE HYDROCHLORIDE
  7. LISINOPRIL. [Concomitant]
     Active Substance: LISINOPRIL
  8. MAGNESIUM OXIDE. [Concomitant]
     Active Substance: MAGNESIUM OXIDE
  9. ADDERALL [Concomitant]
     Active Substance: AMPHETAMINE ASPARTATE\AMPHETAMINE SULFATE\DEXTROAMPHETAMINE SACCHARATE\DEXTROAMPHETAMINE SULFATE
  10. CORTISONE [Concomitant]
     Active Substance: CORTISONE\HYDROCORTISONE
  11. AZITHROMYCIN DIHYDRATE. [Concomitant]
     Active Substance: AZITHROMYCIN DIHYDRATE
  12. VITAMIN B COMPLEX [Concomitant]
     Active Substance: CYANOCOBALAMIN\DEXPANTHENOL\NIACINAMIDE\PYRIDOXINE HYDROCHLORIDE\RIBOFLAVIN 5^-PHOSPHATE SODIUM\THIAMINE HYDROCHLORIDE\VITAMIN B COMPLEX
  13. ASPIRIN EC [Concomitant]
     Active Substance: ASPIRIN
  14. LEVOTHYROXINE. [Concomitant]
     Active Substance: LEVOTHYROXINE
  15. LIVALO [Concomitant]
     Active Substance: PITAVASTATIN CALCIUM
  16. PAROXETINE HCL [Concomitant]
     Active Substance: PAROXETINE HYDROCHLORIDE
  17. ZETIA [Concomitant]
     Active Substance: EZETIMIBE
  18. XYREM [Suspect]
     Active Substance: SODIUM OXYBATE
     Dosage: 3 G, BID
     Route: 048
     Dates: start: 201510, end: 2015

REACTIONS (4)
  - Arthritis [Unknown]
  - Tendonitis [Recovered/Resolved]
  - Thyroid function test abnormal [Recovered/Resolved]
  - Asthenia [Unknown]
